FAERS Safety Report 24353214 (Version 1)
Quarter: 2024Q3

REPORT INFORMATION
  Report Type: Report from Study
  Country: US (occurrence: US)
  Receive Date: 20240923
  Receipt Date: 20240923
  Transmission Date: 20241016
  Serious: No
  Sender: ROCHE
  Company Number: US-ROCHE-3449060

PATIENT
  Age: 54 Year
  Sex: Female

DRUGS (21)
  1. HERCEPTIN [Suspect]
     Active Substance: TRASTUZUMAB
     Indication: Pancreatic carcinoma
     Dosage: 622MG, EVERY 2 WEEKS, REFILL: 3 YEARS
     Route: 065
  2. HERCEPTIN [Suspect]
     Active Substance: TRASTUZUMAB
     Indication: Adenocarcinoma pancreas
  3. TYLENOL [Concomitant]
     Active Substance: ACETAMINOPHEN
  4. AMOXICILLIN\CLAVULANATE POTASSIUM [Concomitant]
     Active Substance: AMOXICILLIN\CLAVULANATE POTASSIUM
  5. CREON [Concomitant]
     Active Substance: PANCRELIPASE AMYLASE\PANCRELIPASE LIPASE\PANCRELIPASE PROTEASE
  6. BACLOFEN [Concomitant]
     Active Substance: BACLOFEN
  7. SARNA (UNITED STATES) [Concomitant]
  8. CYMBALTA [Concomitant]
     Active Substance: DULOXETINE HYDROCHLORIDE
  9. LOVENOX [Concomitant]
     Active Substance: ENOXAPARIN SODIUM
  10. VITAMIN D2 [Concomitant]
     Active Substance: ERGOCALCIFEROL
  11. EMLA [Concomitant]
     Active Substance: LIDOCAINE\PRILOCAINE
  12. DOLOPHINE [Concomitant]
     Active Substance: METHADONE HYDROCHLORIDE
  13. MORPHINE [Concomitant]
     Active Substance: MORPHINE
  14. NARCAN [Concomitant]
     Active Substance: NALOXONE HYDROCHLORIDE
  15. ONDANSETRON [Concomitant]
     Active Substance: ONDANSETRON
  16. PROTONIX [Concomitant]
     Active Substance: PANTOPRAZOLE SODIUM
  17. MIRALAX [Concomitant]
     Active Substance: POLYETHYLENE GLYCOL 3350
  18. COMPAZINE [Concomitant]
     Active Substance: PROCHLORPERAZINE MALEATE
  19. SENOKOT [Concomitant]
     Active Substance: SENNOSIDES
  20. SIMETHICONE (DIMETHICONE) [Concomitant]
     Active Substance: DIMETHICONE
  21. VITAMIN B1 [Concomitant]
     Active Substance: THIAMINE HYDROCHLORIDE

REACTIONS (2)
  - Off label use [Unknown]
  - No adverse event [Unknown]
